FAERS Safety Report 6987337-7 (Version None)
Quarter: 2010Q3

REPORT INFORMATION
  Report Type: 
  Country: None (occurrence: None)
  Receive Date: 20100916
  Receipt Date: 20100906
  Transmission Date: 20110219
  Serious: Yes (Hospitalization)
  Sender: FDA-Public Use
  Company Number: JP-SANOFI-AVENTIS-2010SA036110

PATIENT
  Age: 72 Year
  Sex: Male

DRUGS (11)
  1. OXALIPLATIN [Suspect]
     Indication: RECTAL CANCER METASTATIC
     Route: 041
     Dates: start: 20091021, end: 20091021
  2. OXALIPLATIN [Suspect]
     Route: 041
     Dates: start: 20100304, end: 20100304
  3. ISOVORIN [Suspect]
     Indication: RECTAL CANCER METASTATIC
     Route: 041
     Dates: start: 20091021, end: 20091021
  4. ISOVORIN [Suspect]
     Route: 041
     Dates: start: 20100304, end: 20100304
  5. FLUOROURACIL [Suspect]
     Indication: RECTAL CANCER METASTATIC
     Route: 041
     Dates: start: 20091021, end: 20091022
  6. FLUOROURACIL [Suspect]
     Route: 041
     Dates: start: 20100304, end: 20100305
  7. AVASTIN [Suspect]
     Indication: RECTAL CANCER METASTATIC
     Route: 041
     Dates: start: 20091021, end: 20091021
  8. AVASTIN [Suspect]
     Route: 041
     Dates: start: 20100304, end: 20100304
  9. GRANISETRON HCL [Concomitant]
     Dates: start: 20090603, end: 20100317
  10. DEXAMETHASONE SODIUM PHOSPHATE [Concomitant]
     Dates: start: 20090603, end: 20100317
  11. PYDOXAL [Concomitant]
     Dates: start: 20091111

REACTIONS (5)
  - CARDIAC FAILURE [None]
  - HYPOAESTHESIA [None]
  - LUNG DISORDER [None]
  - PULMONARY CONGESTION [None]
  - PYREXIA [None]
